FAERS Safety Report 9770676 (Version 1)
Quarter: 2013Q4

REPORT INFORMATION
  Report Type: Spontaneous
  Country: US (occurrence: US)
  Receive Date: 20131218
  Receipt Date: 20131218
  Transmission Date: 20140711
  Serious: No
  Sender: FDA-Public Use
  Company Number: US-PFIZER INC-2013362060

PATIENT
  Age: 11 Year
  Sex: Female
  Weight: 48.07 kg

DRUGS (4)
  1. GABAPENTIN [Suspect]
     Indication: ARTHRITIS
     Dosage: UNK
     Dates: start: 201306, end: 2013
  2. GABAPENTIN [Suspect]
     Dosage: 600 MG, 1X/DAY
     Dates: start: 2013, end: 2013
  3. LYRICA [Suspect]
     Indication: FIBROMYALGIA
     Dosage: UNK
  4. MELOXICAM [Concomitant]
     Dosage: UNK

REACTIONS (5)
  - Off label use [Unknown]
  - Drug ineffective for unapproved indication [Unknown]
  - Fibromyalgia [Unknown]
  - Vitamin D decreased [Unknown]
  - Pain [Unknown]
